FAERS Safety Report 15898268 (Version 2)
Quarter: 2019Q1

REPORT INFORMATION
  Report Type: Spontaneous
  Country: PT (occurrence: PT)
  Receive Date: 20190201
  Receipt Date: 20190211
  Transmission Date: 20190417
  Serious: Yes (Hospitalization, Other)
  Sender: FDA-Public Use
  Company Number: PT-009507513-1901PRT011028

PATIENT
  Age: 69 Year
  Sex: Male

DRUGS (1)
  1. BCG LIVE [Suspect]
     Active Substance: BACILLUS CALMETTE-GUERIN SUBSTRAIN TICE LIVE ANTIGEN
     Indication: BLADDER CANCER STAGE 0, WITH CANCER IN SITU
     Dosage: UNK
     Route: 043

REACTIONS (9)
  - Ocular hyperaemia [Unknown]
  - Disability [Unknown]
  - Eye discharge [Unknown]
  - Dysuria [Unknown]
  - Polyarthritis [Unknown]
  - Conjunctivitis [Unknown]
  - Arthritis reactive [Unknown]
  - Pyrexia [Unknown]
  - Flushing [Unknown]
